FAERS Safety Report 23472575 (Version 1)
Quarter: 2024Q1

REPORT INFORMATION
  Report Type: Report from Study
  Country: CA (occurrence: CA)
  Receive Date: 20240202
  Receipt Date: 20240202
  Transmission Date: 20240409
  Serious: Yes (Death)
  Sender: FDA-Public Use
  Company Number: CA-TAIHOP-2024-000923

PATIENT
  Age: 67 Year
  Sex: Male

DRUGS (5)
  1. LONSURF [Suspect]
     Active Substance: TIPIRACIL HYDROCHLORIDE\TRIFLURIDINE
     Indication: Metastatic gastric cancer
     Dosage: CYCLE UNKNOWN
     Route: 048
     Dates: start: 20231209
  2. MORPHINE [Concomitant]
     Active Substance: MORPHINE
     Indication: Product used for unknown indication
     Dosage: DAILY?DAILY DOSE: 40 MILLIGRAM(S)
  3. PANTOPRAZOLE [Concomitant]
     Active Substance: PANTOPRAZOLE
     Indication: Product used for unknown indication
  4. SYNTHROID [Concomitant]
     Active Substance: LEVOTHYROXINE SODIUM
     Indication: Product used for unknown indication
  5. STATEX [Concomitant]
     Indication: Product used for unknown indication
     Dosage: PRN

REACTIONS (1)
  - Death [Fatal]
